FAERS Safety Report 13238404 (Version 6)
Quarter: 2017Q4

REPORT INFORMATION
  Report Type: Report from Study
  Country: PL (occurrence: PL)
  Receive Date: 20170216
  Receipt Date: 20171018
  Transmission Date: 20180320
  Serious: Yes (Hospitalization, Disabling)
  Sender: FDA-Public Use
  Company Number: PL-UCBSA-2017005536

PATIENT
  Age: 63 Year
  Sex: Female
  Weight: 100 kg

DRUGS (13)
  1. CERTOLIZUMAB PEGOL [Suspect]
     Active Substance: CERTOLIZUMAB PEGOL
     Dosage: 200 MG, EV 2 WEEKS(QOW)
     Route: 058
     Dates: start: 20161213, end: 20170207
  2. PERINDOPRIL ERBUMINE. [Concomitant]
     Active Substance: PERINDOPRIL ERBUMINE
     Indication: HYPERTENSION
     Dosage: 4 MG, ONCE AS NEEDED (PRN)
     Route: 048
     Dates: start: 2012
  3. TULIP (ATORVASTATIN CALCIUM) [Concomitant]
     Active Substance: ATORVASTATIN
     Indication: HYPERCHOLESTEROLAEMIA
     Dosage: 20 MG, ONCE DAILY (QD)
     Route: 048
     Dates: start: 2008
  4. NOCTOFER [Concomitant]
     Indication: DEPRESSION
     Dosage: 1 MG, ONCE DAILY (QD)
     Route: 048
     Dates: start: 2000
  5. PLACEBO [Suspect]
     Active Substance: UNSPECIFIED INGREDIENT
     Indication: PSORIASIS
     Dosage: UNK
     Dates: start: 20160405, end: 20160627
  6. CERTOLIZUMAB PEGOL [Suspect]
     Active Substance: CERTOLIZUMAB PEGOL
     Dosage: 400 MG, EV 2 WEEKS(QOW)
     Route: 058
     Dates: start: 20160628, end: 20161212
  7. DIAPREL [Concomitant]
     Active Substance: GLICLAZIDE
     Indication: DIABETES MELLITUS
     Dosage: 3 G, ONCE DAILY (QD)
     Route: 048
     Dates: start: 20151124
  8. TERTENSIF [Concomitant]
     Active Substance: INDAPAMIDE
     Indication: HYPERTENSION
     Dosage: 155 MG, ONCE PER DAY AS NEEDED (PRN)
     Route: 048
     Dates: start: 2012
  9. PROMAZINE [Concomitant]
     Active Substance: PROMAZINE
     Indication: DEPRESSION
     Dosage: 100 MG, ONCE DAILY (QD)
     Route: 048
     Dates: start: 1993
  10. CERTOLIZUMAB PEGOL [Suspect]
     Active Substance: CERTOLIZUMAB PEGOL
     Indication: PSORIASIS
     Dosage: 200 MG, EV 2 WEEKS(QOW)
     Route: 058
     Dates: start: 20151216, end: 20160404
  11. LACIPIL [Concomitant]
     Active Substance: LACIDIPINE
     Indication: HYPERTENSION
     Dosage: 2 MG, ONCE DAILY (QD)
     Route: 048
     Dates: start: 20130201
  12. DEVIKAP [Concomitant]
     Indication: VITAMIN D DEFICIENCY
     Dosage: 1000 (UNSPECIFIED UNITS) ONCE DAILY (QD)
     Route: 048
     Dates: start: 20140903
  13. MIRTAZAPINE. [Concomitant]
     Active Substance: MIRTAZAPINE
     Indication: DEPRESSION
     Dosage: 45 MG, ONCE DAILY (QD)
     Route: 048
     Dates: start: 1993

REACTIONS (2)
  - Laryngeal cancer [Not Recovered/Not Resolved]
  - Dyspnoea [Recovered/Resolved]

NARRATIVE: CASE EVENT DATE: 20161216
